FAERS Safety Report 7232562-3 (Version None)
Quarter: 2011Q1

REPORT INFORMATION
  Report Type: 
  Country: None (occurrence: None)
  Receive Date: 20110112
  Receipt Date: 20110112
  Transmission Date: 20110831
  Serious: Yes (Hospitalization)
  Sender: FDA-Public Use
  Company Number: None

PATIENT
  Sex: Male

DRUGS (1)
  1. QUETIAPINE [Suspect]
     Indication: BIPOLAR DISORDER
     Dosage: 25 MG DAILY PO
     Route: 048

REACTIONS (15)
  - CEREBRAL ISCHAEMIA [None]
  - VENTRICULAR FIBRILLATION [None]
  - FALL [None]
  - PULSELESS ELECTRICAL ACTIVITY [None]
  - LEFT VENTRICULAR DYSFUNCTION [None]
  - ATRIAL FIBRILLATION [None]
  - BRAIN NATRIURETIC PEPTIDE INCREASED [None]
  - CARDIAC ARREST [None]
  - BRAIN HYPOXIA [None]
  - DILATATION VENTRICULAR [None]
  - ELECTROCARDIOGRAM QT PROLONGED [None]
  - NERVOUS SYSTEM DISORDER [None]
  - TROPONIN INCREASED [None]
  - BLOOD CREATINE PHOSPHOKINASE MB INCREASED [None]
  - FATIGUE [None]
